FAERS Safety Report 6196417-8 (Version None)
Quarter: 2009Q2

REPORT INFORMATION
  Report Type: 
  Country: None (occurrence: None)
  Receive Date: 20090518
  Receipt Date: 20090518
  Transmission Date: 20091009
  Serious: No
  Sender: FDA-Public Use
  Company Number: None

PATIENT
  Age: 41 Year
  Sex: Female
  Weight: 90.7194 kg

DRUGS (2)
  1. CYMBALTA [Suspect]
     Indication: DEPRESSION
     Dosage: 60 MG A DAY PO
     Route: 048
     Dates: start: 20070527, end: 20090514
  2. CYMBALTA [Suspect]
     Indication: PANIC ATTACK
     Dosage: 60 MG A DAY PO
     Route: 048
     Dates: start: 20070527, end: 20090514

REACTIONS (4)
  - ABDOMINAL DISCOMFORT [None]
  - FEELING ABNORMAL [None]
  - HYPERHIDROSIS [None]
  - THINKING ABNORMAL [None]
